FAERS Safety Report 8382547-9 (Version None)
Quarter: 2012Q2

REPORT INFORMATION
  Report Type: 
  Country: None (occurrence: None)
  Receive Date: 20120524
  Receipt Date: 20120517
  Transmission Date: 20120825
  Serious: Yes (Other)
  Sender: FDA-Public Use
  Company Number: BR-ABBOTT-12P-020-0936613-00

PATIENT
  Sex: Male
  Weight: 80 kg

DRUGS (4)
  1. DEPAKOTE ER [Suspect]
     Dosage: AFTER DINNER
     Route: 048
     Dates: start: 20111201
  2. DEPAKOTE ER [Suspect]
     Indication: MUSCLE SPASMS
     Dosage: AS NEEDED (IN CRISIS)
     Route: 048
     Dates: start: 20060101
  3. DEPAKOTE ER [Suspect]
     Dosage: 3 TABLETS AFTER DINNER
     Route: 048
     Dates: start: 20120327
  4. DEPAKOTE ER [Suspect]
     Dosage: 2.5 TABLETS AFTER DINNER
     Route: 048
     Dates: start: 20120304

REACTIONS (7)
  - TREMOR [None]
  - CARDIORENAL SYNDROME [None]
  - ILL-DEFINED DISORDER [None]
  - MOANING [None]
  - FACIAL PAIN [None]
  - CONVULSION [None]
  - DRUG INEFFECTIVE [None]
